FAERS Safety Report 10654863 (Version 1)
Quarter: 2014Q4

REPORT INFORMATION
  Report Type: Spontaneous
  Country: DE (occurrence: None)
  Receive Date: 20141212
  Receipt Date: 20141212
  Transmission Date: 20150529
  Serious: Yes (Life-Threatening, Hospitalization)
  Sender: FDA-Public Use
  Company Number: 2014/090

PATIENT
  Age: 21 Year
  Sex: Female

DRUGS (7)
  1. AMITRIPTYLINE [Suspect]
     Active Substance: AMITRIPTYLINE
  2. GABAPENTIN. [Suspect]
     Active Substance: GABAPENTIN
  3. KETOPROFEN. [Suspect]
     Active Substance: KETOPROFEN
  4. AMLODIPINE [Suspect]
     Active Substance: AMLODIPINE BESYLATE
  5. NICOTINIC ACID [Suspect]
     Active Substance: NIACIN
  6. CARVEDILOL. [Suspect]
     Active Substance: CARVEDILOL
  7. TORSEMIDE. [Suspect]
     Active Substance: TORSEMIDE

REACTIONS (7)
  - Intentional overdose [None]
  - Compartment syndrome [None]
  - Bradycardia [None]
  - Loss of consciousness [None]
  - Pulse absent [None]
  - Cardiac failure [None]
  - Suicide attempt [None]
